FAERS Safety Report 12919204 (Version 1)
Quarter: 2016Q4

REPORT INFORMATION
  Report Type: Spontaneous
  Country: CN (occurrence: CN)
  Receive Date: 20161108
  Receipt Date: 20161108
  Transmission Date: 20170207
  Serious: Yes (Other)
  Sender: FDA-Public Use
  Company Number: CN-ACCORD-045443

PATIENT
  Age: 39 Year
  Sex: Male

DRUGS (1)
  1. TOPIRAMATE. [Suspect]
     Active Substance: TOPIRAMATE
     Indication: PARTIAL SEIZURES

REACTIONS (7)
  - Pollakiuria [Recovered/Resolved]
  - Anger [Recovered/Resolved]
  - Asthenia [Recovered/Resolved]
  - Decreased appetite [Recovered/Resolved]
  - Loss of libido [Recovered/Resolved]
  - Nocturia [Recovered/Resolved]
  - Spermatorrhoea [Recovered/Resolved]
